FAERS Safety Report 20042516 (Version 1)
Quarter: 2021Q4

REPORT INFORMATION
  Report Type: Spontaneous
  Country: IT (occurrence: IT)
  Receive Date: 20211108
  Receipt Date: 20211108
  Transmission Date: 20220303
  Serious: Yes (Life-Threatening, Hospitalization, Other)
  Sender: FDA-Public Use
  Company Number: IT-MLMSERVICE-2021102131790331

PATIENT
  Age: 27 Year
  Sex: Female

DRUGS (2)
  1. FUROSEMIDE [Suspect]
     Active Substance: FUROSEMIDE
     Indication: Cardiac failure
     Route: 042
  2. SPIRONOLACTONE [Suspect]
     Active Substance: SPIRONOLACTONE
     Indication: Cardiac failure

REACTIONS (3)
  - Ventricular dysfunction [Unknown]
  - Haemoconcentration [Recovered/Resolved]
  - Cardiac ventricular thrombosis [Recovered/Resolved]
